FAERS Safety Report 8089350-8 (Version None)
Quarter: 2012Q1

REPORT INFORMATION
  Report Type: 
  Country: None (occurrence: None)
  Receive Date: 20120128
  Receipt Date: 20110630
  Transmission Date: 20120608
  Serious: No
  Sender: FDA-Public Use
  Company Number: US-ABBOTT-11P-163-0835703-00

PATIENT
  Sex: Female

DRUGS (4)
  1. URSODIOL [Concomitant]
     Indication: HEPATIC STEATOSIS
  2. UNKNOWN THYROID PILL [Concomitant]
     Indication: THYROID DISORDER
  3. AMITRIPTYLINE HCL [Concomitant]
     Indication: SLEEP DISORDER THERAPY
  4. HUMIRA [Suspect]
     Indication: RHEUMATOID ARTHRITIS
     Dates: start: 20110501, end: 20110608

REACTIONS (3)
  - ERYTHEMA [None]
  - SWELLING FACE [None]
  - HYPOAESTHESIA [None]
